FAERS Safety Report 4413378-X (Version None)
Quarter: 2004Q3

REPORT INFORMATION
  Report Type: 
  Country: None (occurrence: None)
  Receive Date: 20040728
  Receipt Date: 20040708
  Transmission Date: 20050211
  Serious: Yes (Hospitalization, Other)
  Sender: FDA-Public Use
  Company Number: 2004218887VN

PATIENT
  Age: 32 Year
  Sex: Female

DRUGS (2)
  1. TRELSTAR DEPOT [Suspect]
     Indication: UTERINE LEIOMYOMA
     Dosage: 3.75 MG, INTRAMUSCULAR
     Route: 030
  2. PROGESTERONE [Concomitant]

REACTIONS (2)
  - ANAEMIA [None]
  - UTERINE HAEMORRHAGE [None]
